FAERS Safety Report 17351686 (Version 2)
Quarter: 2020Q1

REPORT INFORMATION
  Report Type: Spontaneous
  Country: JP (occurrence: JP)
  Receive Date: 20200130
  Receipt Date: 20200206
  Transmission Date: 20200409
  Serious: Yes (Other)
  Sender: FDA-Public Use
  Company Number: JP-PFIZER INC-2020021621

PATIENT
  Age: 72 Year
  Sex: Male

DRUGS (7)
  1. OXALIPLATIN. [Suspect]
     Active Substance: OXALIPLATIN
     Indication: COLON CANCER RECURRENT
     Dosage: UNK UNK, CYCLIC (MFOLFOX)
  2. CALCIUM FOLINATE [Suspect]
     Active Substance: LEUCOVORIN CALCIUM
     Indication: COLON CANCER RECURRENT
     Dosage: UNK, CYCLIC (MFOLFOX)
  3. FLUOROURACIL. [Suspect]
     Active Substance: FLUOROURACIL
     Indication: COLON CANCER RECURRENT
     Dosage: UNK, CYCLIC (MFOLFOX)
  4. FLUOROURACIL. [Suspect]
     Active Substance: FLUOROURACIL
     Dosage: 3500 MG, (ON DAY 2 OF THE TENTH COURSE) (SUSTAINED 3500 MG/BODY)
     Dates: start: 200906
  5. CALCIUM FOLINATE [Suspect]
     Active Substance: LEUCOVORIN CALCIUM
     Dosage: 300 MG, (ON DAY 2 OF THE TENTH COURSE) (300 MG/BODY)
     Dates: start: 200906
  6. OXALIPLATIN. [Suspect]
     Active Substance: OXALIPLATIN
     Dosage: 120 MG, (ON DAY 2 OF THE TENTH COURSE) (120 MG/BODY)
     Dates: start: 200906
  7. FLUOROURACIL. [Suspect]
     Active Substance: FLUOROURACIL
     Dosage: 580 MG, (ON DAY 2 OF THE TENTH COURSE) (RAPAID 580MG/BODY)
     Dates: start: 200906

REACTIONS (2)
  - Stress cardiomyopathy [Recovered/Resolved]
  - Cardiac failure [Recovered/Resolved]
